FAERS Safety Report 9283625 (Version 1)
Quarter: 2013Q2

REPORT INFORMATION
  Report Type: Spontaneous
  Country: US (occurrence: US)
  Receive Date: 20130510
  Receipt Date: 20130510
  Transmission Date: 20140414
  Serious: Yes (Other)
  Sender: FDA-Public Use
  Company Number: PHEH2013US010233

PATIENT
  Sex: Male

DRUGS (7)
  1. DIOVAN HCT [Suspect]
     Dosage: 1 DF, (320/25 MG)
  2. LISINOPRIL [Suspect]
     Dosage: UNK UKN, UNK
  3. ENBREL [Suspect]
     Dosage: UNK UKN, UNK
  4. HUMIRA [Suspect]
     Dosage: UNK UKN, UNK
  5. ACTEMRA [Suspect]
     Dosage: UNK UKN, UNK
  6. SIMVASTATIN [Concomitant]
     Dosage: 10 MG, UNK
  7. GABAPENTIN [Concomitant]
     Dosage: 300 MG, UNK

REACTIONS (5)
  - Immune system disorder [Unknown]
  - Rheumatoid arthritis [Unknown]
  - Low density lipoprotein increased [Unknown]
  - Lipids increased [Unknown]
  - Drug ineffective [Unknown]
